FAERS Safety Report 8326717-4 (Version None)
Quarter: 2012Q2

REPORT INFORMATION
  Report Type: 
  Country: None (occurrence: None)
  Receive Date: 20120501
  Receipt Date: 20120425
  Transmission Date: 20120825
  Serious: Yes (Hospitalization, Other)
  Sender: FDA-Public Use
  Company Number: DE-ABBOTT-12P-062-0929311-00

PATIENT
  Sex: Male
  Weight: 95 kg

DRUGS (2)
  1. HUMIRA [Suspect]
     Indication: CROHN'S DISEASE
     Route: 058
     Dates: start: 20120116
  2. BUDENOFALK [Concomitant]
     Indication: CROHN'S DISEASE
     Dates: start: 20120201

REACTIONS (6)
  - SUBILEUS [None]
  - VOMITING [None]
  - ABDOMINAL PAIN LOWER [None]
  - NAUSEA [None]
  - RENAL CYST [None]
  - DIARRHOEA [None]
